FAERS Safety Report 9143124 (Version 1)
Quarter: 2013Q1

REPORT INFORMATION
  Report Type: Spontaneous
  Country: AU (occurrence: AU)
  Receive Date: 20130306
  Receipt Date: 20130306
  Transmission Date: 20140127
  Serious: Yes (Hospitalization)
  Sender: FDA-Public Use
  Company Number: AU-ASTRAZENECA-2013SE12707

PATIENT
  Age: 65 Year
  Sex: Female

DRUGS (4)
  1. CRESTOR [Suspect]
     Route: 048
  2. ACTEMRA [Suspect]
     Route: 042
  3. PIROXICAM [Suspect]
  4. PREDNISOLON [Suspect]

REACTIONS (6)
  - Cellulitis [Recovered/Resolved]
  - Back pain [Unknown]
  - Thrombophlebitis superficial [Unknown]
  - Mouth ulceration [Unknown]
  - Local swelling [Unknown]
  - Pain in extremity [Unknown]
